FAERS Safety Report 24861625 (Version 8)
Quarter: 2025Q2

REPORT INFORMATION
  Report Type: Spontaneous
  Country: JP (occurrence: JP)
  Receive Date: 20250120
  Receipt Date: 20250519
  Transmission Date: 20250716
  Serious: Yes (Other)
  Sender: ASTELLAS
  Company Number: JP-ASTELLAS-2024-AER-026146

PATIENT
  Age: 56 Year
  Sex: Male
  Weight: 75 kg

DRUGS (26)
  1. VYLOY [Suspect]
     Active Substance: ZOLBETUXIMAB-CLZB
     Indication: Gastric cancer
     Route: 042
     Dates: start: 20241128
  2. VYLOY [Suspect]
     Active Substance: ZOLBETUXIMAB-CLZB
     Route: 042
     Dates: start: 20241219
  3. VYLOY [Suspect]
     Active Substance: ZOLBETUXIMAB-CLZB
     Route: 042
     Dates: start: 20250130
  4. XELODA [Suspect]
     Active Substance: CAPECITABINE
     Indication: Product used for unknown indication
     Route: 065
     Dates: start: 20241219, end: 20250130
  5. XELODA [Suspect]
     Active Substance: CAPECITABINE
     Route: 065
     Dates: start: 20241128
  6. OXALIPLATIN [Suspect]
     Active Substance: OXALIPLATIN
     Indication: Product used for unknown indication
     Route: 065
     Dates: start: 20241128
  7. OXALIPLATIN [Suspect]
     Active Substance: OXALIPLATIN
     Route: 065
     Dates: start: 20241219, end: 20250130
  8. AMLODIPINE [Concomitant]
     Active Substance: AMLODIPINE BESYLATE
     Indication: Product used for unknown indication
     Dosage: AFTER BREAKFAST
     Route: 065
     Dates: end: 20250115
  9. BENZBROMARONE [Concomitant]
     Active Substance: BENZBROMARONE
     Indication: Product used for unknown indication
     Dosage: AFTER BREAKFAST
     Route: 065
  10. Takecab tablet 10 mg [Concomitant]
     Indication: Product used for unknown indication
     Dosage: AFTER DINNER
     Route: 065
  11. Takecab tablet 10 mg [Concomitant]
     Dosage: AFTER BREAKFAST
     Route: 065
  12. Fero-Gradumet tablet 105 mg [Concomitant]
     Indication: Product used for unknown indication
     Dosage: AFTER BREAKFAST
     Route: 065
  13. Gastrom granule 66.7 % [Concomitant]
     Indication: Product used for unknown indication
     Dosage: AFTER BREAKFAST/DINNER
     Route: 065
  14. ESZOPICLONE [Concomitant]
     Active Substance: ESZOPICLONE
     Indication: Insomnia
     Route: 065
  15. CALONAL [Concomitant]
     Active Substance: ACETAMINOPHEN
     Indication: Pain
     Dosage: 1 TABLET (500), AFTER EACH MEAL
     Route: 065
  16. CALONAL [Concomitant]
     Active Substance: ACETAMINOPHEN
     Route: 065
  17. Loxoprofen Na Tape 100 mg (10X14 cm Non-thermal sensation) [Concomitant]
     Indication: Product used for unknown indication
     Route: 050
  18. Metoclopramide tablet 5 mg [Concomitant]
     Indication: Nausea
     Route: 065
  19. CARBOHYDRATES\FATTY ACIDS\MINERALS\PROTEIN\VITAMINS [Concomitant]
     Active Substance: CARBOHYDRATES\FATTY ACIDS\MINERALS\PROTEIN\VITAMINS
     Indication: Product used for unknown indication
     Dosage: IN THE MORNING
     Route: 065
  20. DECADRON [Concomitant]
     Active Substance: DEXAMETHASONE
     Indication: Product used for unknown indication
     Dosage: AFTER BREAKFAST/LUNCH
     Route: 065
  21. Saliveht Aerosol [Concomitant]
     Indication: Product used for unknown indication
     Route: 050
  22. Sodium ferrous citrate tablet 50 mg [Concomitant]
     Indication: Mineral supplementation
     Dosage: AFTER BREAKFAST
     Route: 065
  23. Tarlige OD tablet 5 mg [Concomitant]
     Indication: Product used for unknown indication
     Dosage: AFTER BREAKFAST/DINNER
     Route: 065
  24. FUROSEMIDE [Concomitant]
     Active Substance: FUROSEMIDE
     Indication: Oedema
     Route: 065
  25. SPIRONOLACTONE [Concomitant]
     Active Substance: SPIRONOLACTONE
     Indication: Oedema
     Route: 065
  26. Inavir inhaler [Concomitant]
     Indication: Influenza
     Route: 055
     Dates: start: 20241229

REACTIONS (10)
  - Hepatic function abnormal [Recovering/Resolving]
  - Blood albumin decreased [Recovering/Resolving]
  - Taste disorder [Not Recovered/Not Resolved]
  - Oedema [Recovering/Resolving]
  - Decreased appetite [Recovering/Resolving]
  - Influenza [Recovered/Resolved]
  - Full blood count decreased [Recovered/Resolved]
  - Hepatic steatosis [Not Recovered/Not Resolved]
  - Anaemia [Not Recovered/Not Resolved]
  - Product use issue [Unknown]

NARRATIVE: CASE EVENT DATE: 20241218
